FAERS Safety Report 4881460-9 (Version None)
Quarter: 2006Q1

REPORT INFORMATION
  Report Type: 
  Country: None (occurrence: None)
  Receive Date: 20060116
  Receipt Date: 20051011
  Transmission Date: 20060701
  Serious: Yes (Hospitalization)
  Sender: FDA-Public Use
  Company Number: US-BOEHRINGER INGELHEIM PHARMACEUTICALS, INC.-2005-BP-18021BP

PATIENT
  Sex: Male

DRUGS (9)
  1. SPIRIVA [Suspect]
     Indication: CHRONIC OBSTRUCTIVE PULMONARY DISEASE
     Route: 055
     Dates: start: 20041001
  2. COUMADIN [Concomitant]
     Indication: CARDIAC DISORDER
     Route: 048
  3. ADVAIR DISKUS 250/50 [Concomitant]
     Indication: CHRONIC OBSTRUCTIVE PULMONARY DISEASE
     Route: 048
  4. TOPROL [Concomitant]
     Indication: CARDIAC DISORDER
     Route: 048
  5. NEURONTIN [Concomitant]
     Indication: PAIN IN EXTREMITY
     Route: 048
  6. PAXIL [Concomitant]
     Indication: DEPRESSION
     Route: 048
  7. DOXYCYCLINE [Concomitant]
     Indication: EYE DISORDER
     Route: 048
  8. TRAMADOL HCL [Concomitant]
     Route: 048
  9. LARTEL [Concomitant]
     Route: 048

REACTIONS (2)
  - INTRACRANIAL ANEURYSM [None]
  - SKIN LACERATION [None]
